FAERS Safety Report 10073390 (Version 3)
Quarter: 2015Q2

REPORT INFORMATION
  Report Type: Report from Study
  Country: PT (occurrence: PT)
  Receive Date: 20140411
  Receipt Date: 20150427
  Transmission Date: 20150821
  Serious: No
  Sender: FDA-Public Use
  Company Number: PHHY2013PT126731

PATIENT
  Age: 31 Year
  Sex: Male

DRUGS (2)
  1. EXTAVIA [Suspect]
     Active Substance: INTERFERON BETA-1B
     Dosage: 250 UG, EVERY OTHER DAY
     Route: 058
     Dates: start: 201402
  2. EXTAVIA [Suspect]
     Active Substance: INTERFERON BETA-1B
     Indication: MULTIPLE SCLEROSIS
     Dosage: 250 UG, QOD
     Route: 058
     Dates: start: 20120714

REACTIONS (5)
  - Injection site pain [Recovered/Resolved]
  - Limb discomfort [Unknown]
  - Nodule [Recovered/Resolved]
  - Injection site pain [Recovered/Resolved]
  - Peau d^orange [Recovered/Resolved]

NARRATIVE: CASE EVENT DATE: 201207
